FAERS Safety Report 12898395 (Version 17)
Quarter: 2017Q1

REPORT INFORMATION
  Report Type: Spontaneous
  Country: KR (occurrence: KR)
  Receive Date: 20161031
  Receipt Date: 20170303
  Transmission Date: 20170428
  Serious: Yes (Other)
  Sender: FDA-Public Use
  Company Number: KR-009507513-1610KOR011547

PATIENT
  Age: 73 Year
  Sex: Female
  Weight: 77.3 kg

DRUGS (27)
  1. EMEND (FOSAPREPITANT DIMEGLUMINE) [Suspect]
     Active Substance: FOSAPREPITANT DIMEGLUMINE
     Indication: PROPHYLAXIS OF NAUSEA AND VOMITING
     Dosage: 150 MG, ONCE
     Route: 042
     Dates: start: 20161018, end: 20161018
  2. KANARB [Concomitant]
     Indication: HYPERTENSION
     Dosage: 60 MG, QD
     Route: 048
  3. SEPTRIN [Concomitant]
     Active Substance: SULFAMETHOXAZOLE\TRIMETHOPRIM
     Indication: INFECTION PROPHYLAXIS
     Dosage: 1 MG, BID
     Route: 048
     Dates: start: 20161018, end: 20161024
  4. EMEND (FOSAPREPITANT DIMEGLUMINE) [Suspect]
     Active Substance: FOSAPREPITANT DIMEGLUMINE
     Dosage: 150 MG, ONCE
     Route: 042
     Dates: start: 20161129, end: 20161129
  5. MABTHERA [Concomitant]
     Active Substance: RITUXIMAB
     Indication: DIFFUSE LARGE B-CELL LYMPHOMA
     Dosage: 656 MG, ONCE; CYCLE 1
     Route: 042
     Dates: start: 20161018, end: 20161018
  6. ALOXI [Concomitant]
     Active Substance: PALONOSETRON HYDROCHLORIDE
     Indication: PROPHYLAXIS OF NAUSEA AND VOMITING
     Dosage: 0.25 MG, ONCE
     Route: 042
     Dates: start: 20161018, end: 20161018
  7. TARGIN PR [Concomitant]
     Indication: MYALGIA
     Dosage: 1 MG, BID
     Route: 048
     Dates: start: 20161017, end: 20161219
  8. CRAVIT [Concomitant]
     Active Substance: LEVOFLOXACIN
     Indication: INFECTION PROPHYLAXIS
     Dosage: 500 MG, QD
     Route: 048
     Dates: start: 20161018, end: 20161027
  9. EMEND (FOSAPREPITANT DIMEGLUMINE) [Suspect]
     Active Substance: FOSAPREPITANT DIMEGLUMINE
     Dosage: 150 MG, ONCE
     Route: 042
     Dates: start: 20161108, end: 20161108
  10. EMEND (FOSAPREPITANT DIMEGLUMINE) [Suspect]
     Active Substance: FOSAPREPITANT DIMEGLUMINE
     Dosage: 150 MG, ONCE
     Route: 042
     Dates: start: 20170116, end: 20170116
  11. EMEND (FOSAPREPITANT DIMEGLUMINE) [Suspect]
     Active Substance: FOSAPREPITANT DIMEGLUMINE
     Dosage: 150 MG, ONCE
     Route: 042
     Dates: start: 20170206, end: 20170206
  12. ILDONG ADRIAMYCIN RDF [Concomitant]
     Indication: DIFFUSE LARGE B-CELL LYMPHOMA
     Dosage: 61 MG, ONCE; CYCLE 1
     Route: 042
     Dates: start: 20161018, end: 20161018
  13. CARDIOXANE [Concomitant]
     Active Substance: DEXRAZOXANE HYDROCHLORIDE
     Indication: PROPHYLAXIS
     Dosage: 610 MG, ONCE
     Route: 042
     Dates: start: 20161018, end: 20161018
  14. MUTERAN [Concomitant]
     Active Substance: ACETYLCYSTEINE
     Indication: PRODUCTIVE COUGH
     Dosage: 200 MG, TID
     Route: 048
     Dates: start: 20161006
  15. LEGALON [Concomitant]
     Active Substance: MILK THISTLE
     Indication: LIVER FUNCTION TEST ABNORMAL
     Dosage: 140 MG, TID
     Route: 048
     Dates: start: 20161011, end: 20161027
  16. VINCRISTINE SULFATE. [Concomitant]
     Active Substance: VINCRISTINE SULFATE
     Indication: DIFFUSE LARGE B-CELL LYMPHOMA
     Dosage: 1.7 MG, ONCE; CYCLE 1(1MG/ML / 1ML)
     Route: 042
     Dates: start: 20161018, end: 20161018
  17. FORXIGA [Concomitant]
     Active Substance: DAPAGLIFLOZIN
     Indication: DIABETES MELLITUS
     Dosage: 10 MG, QD
     Route: 048
  18. BORYUNG MUCOMYST [Concomitant]
     Indication: PRODUCTIVE COUGH
     Dosage: 800 MG, QID,(FORMULATION: SOLUTION, STRENGTH: 800MG/4ML)
     Route: 055
     Dates: start: 20161014, end: 20161020
  19. EMEND (FOSAPREPITANT DIMEGLUMINE) [Suspect]
     Active Substance: FOSAPREPITANT DIMEGLUMINE
     Dosage: 150 MG, ONCE
     Route: 042
     Dates: start: 20161220, end: 20161220
  20. DIABEX [Concomitant]
     Active Substance: METFORMIN HYDROCHLORIDE
     Indication: DIABETES MELLITUS
     Dosage: 500 MG, QD
     Route: 048
  21. ENDOXAN [Concomitant]
     Active Substance: CYCLOPHOSPHAMIDE
     Indication: DIFFUSE LARGE B-CELL LYMPHOMA
     Dosage: 918.7 MG ONCE; CYCLE 1
     Route: 042
     Dates: start: 20161018, end: 20161018
  22. PLOKON [Concomitant]
     Indication: INFUSION RELATED REACTION
     Dosage: 3 MG, ONCE
     Route: 042
     Dates: start: 20161018, end: 20161018
  23. SOLONDO [Concomitant]
     Active Substance: PREDNISOLONE
     Indication: PROPHYLAXIS OF NAUSEA AND VOMITING
     Dosage: 40 MG, QD
     Route: 048
     Dates: start: 20161018, end: 20161022
  24. ZYLORIC [Concomitant]
     Active Substance: ALLOPURINOL
     Indication: PROPHYLAXIS
     Dosage: 100 MG, TID
     Route: 048
     Dates: start: 20161018, end: 20161129
  25. AMARYL [Concomitant]
     Active Substance: GLIMEPIRIDE
     Indication: DIABETES MELLITUS
     Dosage: 1 MG, QD
     Route: 048
  26. URSA TABLETS [Concomitant]
     Indication: LIVER FUNCTION TEST ABNORMAL
     Dosage: 1 TABLET, TID
     Route: 048
     Dates: start: 20161011, end: 20161027
  27. SOLONDO [Concomitant]
     Active Substance: PREDNISOLONE
     Dosage: 30 MG, QD
     Route: 048
     Dates: start: 20161018, end: 20161022

REACTIONS (16)
  - Dyspepsia [Recovered/Resolved]
  - Constipation [Recovered/Resolved]
  - Nausea [Recovered/Resolved]
  - Neutrophil count decreased [Recovered/Resolved]
  - Neutrophil count decreased [Recovered/Resolved]
  - Hyperkalaemia [Recovered/Resolved]
  - Constipation [Recovering/Resolving]
  - Neutrophil count decreased [Recovered/Resolved]
  - Hyperkalaemia [Recovered/Resolved]
  - Neutrophil count decreased [Recovered/Resolved]
  - Back pain [Recovering/Resolving]
  - Decreased appetite [Unknown]
  - Neutrophil count decreased [Recovered/Resolved]
  - Infusion related reaction [Recovered/Resolved]
  - Cough [Recovering/Resolving]
  - Musculoskeletal pain [Unknown]

NARRATIVE: CASE EVENT DATE: 2016
